FAERS Safety Report 4943028-5 (Version None)
Quarter: 2006Q1

REPORT INFORMATION
  Report Type: 
  Country: None (occurrence: None)
  Receive Date: 20060309
  Receipt Date: 20060303
  Transmission Date: 20060701
  Serious: Yes (Death)
  Sender: FDA-Public Use
  Company Number: TCI2006A00964

PATIENT
  Age: 81 Year
  Sex: Male

DRUGS (5)
  1. LANSOPRAZOLE [Suspect]
     Indication: GASTRIC ULCER HAEMORRHAGE
     Dosage: 30 MG (30 MG, 1 IN 1 D)
     Route: 048
     Dates: start: 20051012, end: 20051025
  2. LEUPROLIDE ACETATE [Suspect]
     Route: 058
  3. MUCOSTA (REBAMIPIDE) (PREPARATION FOR ORAL USE (NOS)) [Concomitant]
  4. SUCRALFATE [Concomitant]
  5. APLACE (TROXIPIDE) [Concomitant]

REACTIONS (5)
  - CARDIAC FAILURE [None]
  - DYSENTERY [None]
  - GASTRIC ULCER HAEMORRHAGE [None]
  - IMMUNE SYSTEM DISORDER [None]
  - INTERSTITIAL LUNG DISEASE [None]
